FAERS Safety Report 5604967-5 (Version None)
Quarter: 2008Q1

REPORT INFORMATION
  Report Type: 
  Country: None (occurrence: None)
  Receive Date: 20080128
  Receipt Date: 20080107
  Transmission Date: 20080703
  Serious: No
  Sender: FDA-Public Use
  Company Number: US-BOEHRINGER INGELHEIM PHARMACEUTICALS, INC.-2007-BP-25977BP

PATIENT
  Sex: Female

DRUGS (6)
  1. SPIRIVA [Suspect]
     Indication: CHRONIC OBSTRUCTIVE PULMONARY DISEASE
     Route: 055
     Dates: start: 20060101, end: 20070712
  2. FUROSEMIDE [Concomitant]
     Indication: OEDEMA
  3. PROPRANOLOL [Concomitant]
     Indication: MIGRAINE
  4. OXYBUTIN [Concomitant]
  5. FLUOXETINE [Concomitant]
  6. LEVOTHYROXINE SODIUM [Concomitant]
     Indication: THYROID DISORDER

REACTIONS (4)
  - AIRWAY BURNS [None]
  - DYSPNOEA [None]
  - PULMONARY MASS [None]
  - THROAT IRRITATION [None]
